FAERS Safety Report 11580686 (Version 3)
Quarter: 2015Q4

REPORT INFORMATION
  Report Type: Spontaneous
  Country: US (occurrence: US)
  Receive Date: 20150930
  Receipt Date: 20151023
  Transmission Date: 20160304
  Serious: Yes (Other)
  Sender: FDA-Public Use
  Company Number: PHEH2015US018760

PATIENT
  Sex: Female

DRUGS (2)
  1. COSENTYX [Suspect]
     Active Substance: SECUKINUMAB
     Indication: PSORIATIC ARTHROPATHY
     Dosage: 300 MG, QMO
     Route: 058
     Dates: start: 20150421
  2. COSENTYX [Suspect]
     Active Substance: SECUKINUMAB
     Indication: CROHN^S DISEASE

REACTIONS (3)
  - Off label use [Unknown]
  - Candida infection [Recovered/Resolved]
  - Drug ineffective for unapproved indication [Unknown]
